FAERS Safety Report 16941236 (Version 1)
Quarter: 2019Q4

REPORT INFORMATION
  Report Type: Spontaneous
  Country: US (occurrence: US)
  Receive Date: 20191021
  Receipt Date: 20191021
  Transmission Date: 20200122
  Serious: Yes (Other)
  Sender: FDA-Public Use
  Company Number: US-BAYER-2019-186918

PATIENT
  Weight: .67 kg

DRUGS (1)
  1. ACETYLSALICYLIC ACID (CARDIO) [Suspect]
     Active Substance: ASPIRIN
     Dosage: 81 MG, QD
     Route: 064

REACTIONS (3)
  - Low birth weight baby [None]
  - Foetal exposure during pregnancy [None]
  - Premature baby [None]
